FAERS Safety Report 7983106-X (Version None)
Quarter: 2011Q4

REPORT INFORMATION
  Report Type: 
  Country: None (occurrence: None)
  Receive Date: 20111215
  Receipt Date: 20111212
  Transmission Date: 20120403
  Serious: No
  Sender: FDA-Public Use
  Company Number: US-JNJFOC-20111205775

PATIENT
  Sex: Female
  Weight: 99.79 kg

DRUGS (1)
  1. INVEGA SUSTENNA [Suspect]
     Indication: SCHIZOPHRENIA
     Route: 030
     Dates: start: 20110901

REACTIONS (1)
  - VISION BLURRED [None]
